FAERS Safety Report 4297525-9 (Version None)
Quarter: 2004Q1

REPORT INFORMATION
  Report Type: 
  Country: None (occurrence: None)
  Receive Date: 20040212
  Receipt Date: 20040204
  Transmission Date: 20041129
  Serious: Yes (Other)
  Sender: FDA-Public Use
  Company Number: 2003-09-1410

PATIENT
  Age: 44 Year
  Sex: Male

DRUGS (3)
  1. ALBUTEROL [Suspect]
     Indication: ASTHMA
     Dosage: 2 PUFF BID/PRN ORAL AER INH
     Route: 055
     Dates: start: 19980101, end: 19980101
  2. ALBUTEROL [Suspect]
     Indication: ASTHMA
     Dosage: 2 PUFF BID/PRN ORAL AER INH
     Route: 055
     Dates: start: 20000101, end: 20000101
  3. ALBUTEROL [Suspect]
     Indication: ASTHMA
     Dosage: 2 PUFF BID/PRN ORAL AER INH
     Route: 055
     Dates: start: 20030101, end: 20030101

REACTIONS (6)
  - BRONCHOSPASM [None]
  - CONVULSION [None]
  - DRUG EFFECT DECREASED [None]
  - DRUG INEFFECTIVE [None]
  - PHARMACEUTICAL PRODUCT COMPLAINT [None]
  - RESPIRATORY DISORDER [None]
